FAERS Safety Report 11813176 (Version 3)
Quarter: 2016Q1

REPORT INFORMATION
  Report Type: Spontaneous
  Country: FR (occurrence: FR)
  Receive Date: 20151209
  Receipt Date: 20160113
  Transmission Date: 20160525
  Serious: Yes (Death, Hospitalization, Other)
  Sender: FDA-Public Use
  Company Number: FR-ALEXION PHARMACEUTICALS INC-A201504884

PATIENT
  Sex: Male

DRUGS (1)
  1. SOLIRIS [Suspect]
     Active Substance: ECULIZUMAB
     Indication: PAROXYSMAL NOCTURNAL HAEMOGLOBINURIA
     Dosage: UNK
     Route: 042

REACTIONS (12)
  - Anaemia [Unknown]
  - Septic shock [Fatal]
  - Multiple organ dysfunction syndrome [Unknown]
  - Condition aggravated [Unknown]
  - Phlebitis [Unknown]
  - Leukopenia [Recovering/Resolving]
  - Staphylococcal sepsis [Fatal]
  - Myelodysplastic syndrome [Unknown]
  - Pancytopenia [Unknown]
  - Haemolysis [Unknown]
  - Post procedural infection [Unknown]
  - Vessel puncture site thrombosis [Unknown]
